FAERS Safety Report 8793121 (Version 5)
Quarter: 2015Q2

REPORT INFORMATION
  Report Type: Spontaneous
  Country: US (occurrence: US)
  Receive Date: 20120918
  Receipt Date: 20150618
  Transmission Date: 20150821
  Serious: No
  Sender: FDA-Public Use
  Company Number: US-ASTRAZENECA-2012SE71684

PATIENT
  Age: 65 Year
  Sex: Female
  Weight: 74.8 kg

DRUGS (8)
  1. ATENOLOL. [Suspect]
     Active Substance: ATENOLOL
     Indication: BLOOD PRESSURE
     Route: 048
  2. XANAX [Concomitant]
     Active Substance: ALPRAZOLAM
     Dosage: AS NEEDED
  3. PERCOCET [Concomitant]
     Active Substance: ACETAMINOPHEN\OXYCODONE HYDROCHLORIDE
     Dosage: AS NEEDED
  4. SEROQUEL [Suspect]
     Active Substance: QUETIAPINE FUMARATE
     Indication: SLEEP DISORDER
     Dosage: 25 MG EITHER DAILY OR BID, WITH/WITHOUT AN ADDITIONAL 25 MG TABLET AT NIGHT
     Route: 048
  5. LOVASTATIN. [Concomitant]
     Active Substance: LOVASTATIN
  6. SUMATRIPTIN [Concomitant]
     Dosage: AS NEEDED
  7. SERTRALINE [Concomitant]
     Active Substance: SERTRALINE HYDROCHLORIDE
  8. SEROQUEL [Suspect]
     Active Substance: QUETIAPINE FUMARATE
     Indication: SLEEP DISORDER
     Dosage: GENERIC
     Route: 048

REACTIONS (12)
  - Dry mouth [Unknown]
  - Abnormal sensation in eye [Unknown]
  - Heart rate increased [Unknown]
  - Blepharitis [Unknown]
  - Somnolence [Unknown]
  - Product use issue [Unknown]
  - Adverse drug reaction [Unknown]
  - Sedation [Unknown]
  - Dry eye [Unknown]
  - Drug ineffective [Unknown]
  - Off label use [None]
  - Chest discomfort [Unknown]

NARRATIVE: CASE EVENT DATE: 201209
